FAERS Safety Report 9813207 (Version 3)
Quarter: 2014Q2

REPORT INFORMATION
  Report Type: Spontaneous
  Country: US (occurrence: US)
  Receive Date: 20140113
  Receipt Date: 20140522
  Transmission Date: 20141212
  Serious: Yes (Other)
  Sender: FDA-Public Use
  Company Number: US-BAYER-2014-002289

PATIENT
  Age: 27 Year
  Sex: Female
  Weight: 75.74 kg

DRUGS (1)
  1. MIRENA [Suspect]
     Indication: CONTRACEPTION
     Dosage: 20 MCG/24HR, CONT
     Route: 015
     Dates: start: 20121109, end: 20130719

REACTIONS (9)
  - Haemorrhage in pregnancy [Recovered/Resolved]
  - Device issue [Recovered/Resolved]
  - Device difficult to use [Recovered/Resolved]
  - Procedural haemorrhage [Recovered/Resolved]
  - Abdominal pain lower [Recovered/Resolved]
  - Pregnancy with contraceptive device [Recovered/Resolved]
  - Drug ineffective [Recovered/Resolved]
  - Subchorionic haemorrhage [None]
  - Abortion threatened [None]
